FAERS Safety Report 5243588-3 (Version None)
Quarter: 2007Q1

REPORT INFORMATION
  Report Type: 
  Country: None (occurrence: None)
  Receive Date: 20070220
  Receipt Date: 20070220
  Transmission Date: 20070707
  Serious: Yes (Other)
  Sender: FDA-Public Use
  Company Number: None

PATIENT
  Age: 45 Year
  Sex: Female
  Weight: 74.8435 kg

DRUGS (2)
  1. CLONAZEPAM [Suspect]
     Indication: ANXIETY
     Dosage: ONE HALF TAB  BID IN NIGHT  PO
     Route: 048
     Dates: start: 20070130, end: 20070216
  2. CLONAZEPAM [Suspect]
     Indication: SLEEP DISORDER
     Dosage: ONE HALF TAB  BID IN NIGHT  PO
     Route: 048
     Dates: start: 20070130, end: 20070216

REACTIONS (3)
  - DIZZINESS [None]
  - DRUG INEFFECTIVE [None]
  - SOMNOLENCE [None]
